FAERS Safety Report 7042832-X (Version None)
Quarter: 2010Q4

REPORT INFORMATION
  Report Type: 
  Country: None (occurrence: None)
  Receive Date: 20101013
  Receipt Date: 20100202
  Transmission Date: 20110411
  Serious: No
  Sender: FDA-Public Use
  Company Number: US-ASTRAZENECA-2010SE05267

PATIENT
  Sex: Female

DRUGS (1)
  1. SYMBICORT [Suspect]
     Dosage: 640 UG TWICE ADAY
     Route: 055
     Dates: start: 20091116

REACTIONS (2)
  - DYSPEPSIA [None]
  - VISION BLURRED [None]
